FAERS Safety Report 16935494 (Version 2)
Quarter: 2020Q1

REPORT INFORMATION
  Report Type: Spontaneous
  Country: AR (occurrence: AR)
  Receive Date: 20191018
  Receipt Date: 20200204
  Transmission Date: 20200409
  Serious: Yes (Other)
  Sender: FDA-Public Use
  Company Number: AR-ABBVIE-19P-007-2969596-00

PATIENT
  Age: 19 Year
  Sex: Male

DRUGS (1)
  1. VALCOTE ER [Suspect]
     Active Substance: VALPROATE SODIUM
     Indication: DEPRESSION
     Dosage: DAILY DOSE: 1 TAB, 1 IN 1DAYS.
     Route: 048
     Dates: start: 201902

REACTIONS (2)
  - Product dispensing error [Unknown]
  - Wrong product administered [Unknown]

NARRATIVE: CASE EVENT DATE: 201902
